FAERS Safety Report 16423799 (Version 1)
Quarter: 2019Q2

REPORT INFORMATION
  Report Type: Spontaneous
  Country: US (occurrence: US)
  Receive Date: 20190613
  Receipt Date: 20190613
  Transmission Date: 20190711
  Serious: No
  Sender: FDA-Public Use
  Company Number: US-SHIRE-US201918692

PATIENT
  Age: 83 Year
  Sex: Male
  Weight: 81.18 kg

DRUGS (1)
  1. XIIDRA [Suspect]
     Active Substance: LIFITEGRAST
     Indication: DRY EYE
     Dosage: UNK
     Route: 047
     Dates: start: 20190513

REACTIONS (3)
  - Frustration tolerance decreased [Not Recovered/Not Resolved]
  - Therapy cessation [Recovered/Resolved]
  - Product container issue [Unknown]

NARRATIVE: CASE EVENT DATE: 201905
